FAERS Safety Report 4621335-3 (Version None)
Quarter: 2005Q1

REPORT INFORMATION
  Report Type: 
  Country: None (occurrence: None)
  Receive Date: 20050324
  Receipt Date: 20050324
  Transmission Date: 20050727
  Serious: Yes (Other)
  Sender: FDA-Public Use
  Company Number: None

PATIENT
  Sex: Male
  Weight: 63.5036 kg

DRUGS (2)
  1. RISPERDAL [Suspect]
     Indication: MAJOR DEPRESSION
     Dosage: 4MG   DAILY    ORAL
     Route: 048
     Dates: start: 20050301, end: 20050301
  2. RISPERDAL [Suspect]
     Indication: PSYCHOTIC DISORDER
     Dosage: 4MG   DAILY    ORAL
     Route: 048
     Dates: start: 20050301, end: 20050301

REACTIONS (3)
  - ERYTHEMA [None]
  - FLUSHING [None]
  - PRURITUS GENERALISED [None]
